FAERS Safety Report 5235138-2 (Version None)
Quarter: 2007Q1

REPORT INFORMATION
  Report Type: 
  Country: None (occurrence: None)
  Receive Date: 20070207
  Receipt Date: 20070123
  Transmission Date: 20070707
  Serious: Yes (Other)
  Sender: FDA-Public Use
  Company Number: VER_0040_2007

PATIENT
  Age: 34 Year
  Sex: Female

DRUGS (2)
  1. EPINEPHRINE [Suspect]
     Indication: ANAPHYLACTIC REACTION
     Dosage: 0.3 MG UNK SC
     Route: 058
     Dates: start: 20070122
  2. EPINEPHRINE [Suspect]
     Indication: FOOD ALLERGY
     Dosage: 0.3 MG UNK SC
     Route: 058
     Dates: start: 20070122

REACTIONS (2)
  - DEVICE FAILURE [None]
  - PHARMACEUTICAL PRODUCT COMPLAINT [None]
